FAERS Safety Report 5609248-1 (Version None)
Quarter: 2008Q1

REPORT INFORMATION
  Report Type: 
  Country: None (occurrence: None)
  Receive Date: 20080129
  Receipt Date: 20080129
  Transmission Date: 20080703
  Serious: Yes (Life-Threatening)
  Sender: FDA-Public Use
  Company Number: None

PATIENT
  Age: 20 Year
  Sex: Female
  Weight: 52.1637 kg

DRUGS (1)
  1. THEOPHYLLINE [Suspect]
     Indication: CHRONIC OBSTRUCTIVE PULMONARY DISEASE
     Dosage: 100 MG TID PO
     Route: 048
     Dates: start: 20080125, end: 20080126

REACTIONS (4)
  - OBSTRUCTIVE AIRWAYS DISORDER [None]
  - RASH ERYTHEMATOUS [None]
  - URTICARIA [None]
  - VISUAL ACUITY REDUCED [None]
